FAERS Safety Report 6677307-0 (Version None)
Quarter: 2010Q2

REPORT INFORMATION
  Report Type: 
  Country: None (occurrence: None)
  Receive Date: 20100412
  Receipt Date: 20100331
  Transmission Date: 20101027
  Serious: Yes (Other)
  Sender: FDA-Public Use
  Company Number: TW-WATSON-2010-04401

PATIENT
  Age: 52 Year
  Sex: Male

DRUGS (2)
  1. FUROSEMIDE (WATSON LABORATORIES) [Suspect]
     Indication: RENAL FAILURE
     Dosage: UNK
  2. TACROLIMUS [Suspect]
     Indication: RENAL TRANSPLANT
     Dosage: UNK

REACTIONS (1)
  - PEMPHIGOID [None]
